FAERS Safety Report 7013724-7 (Version None)
Quarter: 2010Q3

REPORT INFORMATION
  Report Type: 
  Country: None (occurrence: None)
  Receive Date: 20100924
  Receipt Date: 20100920
  Transmission Date: 20110219
  Serious: No
  Sender: FDA-Public Use
  Company Number: US-PFIZER INC-2010119463

PATIENT

DRUGS (1)
  1. SUTENT [Suspect]

REACTIONS (1)
  - PAIN [None]
